FAERS Safety Report 12164464 (Version 1)
Quarter: 2016Q1

REPORT INFORMATION
  Report Type: Spontaneous
  Country: US (occurrence: US)
  Receive Date: 20160309
  Receipt Date: 20160309
  Transmission Date: 20160526
  Serious: No
  Sender: FDA-Public Use
  Company Number: US-ROCHE-1680444

PATIENT
  Age: 60 Year
  Sex: Male

DRUGS (1)
  1. XOLAIR [Suspect]
     Active Substance: OMALIZUMAB
     Indication: ASTHMA
     Route: 065

REACTIONS (3)
  - Drug administration error [Unknown]
  - No adverse event [Unknown]
  - Product contamination physical [Unknown]

NARRATIVE: CASE EVENT DATE: 20151217
